FAERS Safety Report 5413459-8 (Version None)
Quarter: 2007Q3

REPORT INFORMATION
  Report Type: 
  Country: None (occurrence: None)
  Receive Date: 20070809
  Receipt Date: 20070809
  Transmission Date: 20080115
  Serious: Yes (Life-Threatening, Hospitalization)
  Sender: FDA-Public Use
  Company Number: None

PATIENT
  Age: 32 Year
  Sex: Female
  Weight: 46.2669 kg

DRUGS (2)
  1. LAMICTAL [Suspect]
     Indication: CONVULSION
     Dosage: 1 TABLET 2 X A DAY PO
     Route: 048
     Dates: start: 20070615, end: 20070715
  2. LAMICTAL [Suspect]
     Indication: INSOMNIA
     Dosage: 1 TABLET 2 X A DAY PO
     Route: 048
     Dates: start: 20070615, end: 20070715

REACTIONS (1)
  - STEVENS-JOHNSON SYNDROME [None]
